FAERS Safety Report 9951924 (Version 2)
Quarter: 2014Q1

REPORT INFORMATION
  Report Type: Spontaneous
  Country: ZA (occurrence: ZA)
  Receive Date: 20140304
  Receipt Date: 20140312
  Transmission Date: 20141002
  Serious: Yes (Other)
  Sender: FDA-Public Use
  Company Number: ZA-ASTRAZENECA-2014SE13489

PATIENT
  Age: 9985 Day
  Sex: Female

DRUGS (1)
  1. NAROPIN POLYBAG [Suspect]
     Dosage: 30-36 ML OF 2 MG/ML, 8 TO 12 ML PER HOUR
     Route: 042
     Dates: start: 20140218, end: 20140218

REACTIONS (1)
  - Intentional drug misuse [Recovered/Resolved]
